FAERS Safety Report 4268561-3 (Version None)
Quarter: 2004Q1

REPORT INFORMATION
  Report Type: 
  Country: None (occurrence: None)
  Receive Date: 20040108
  Receipt Date: 20031229
  Transmission Date: 20041129
  Serious: Yes (Hospitalization)
  Sender: FDA-Public Use
  Company Number: US-JNJFOC-20030702443

PATIENT
  Age: 59 Year
  Sex: Female

DRUGS (14)
  1. REMICADE [Suspect]
     Indication: RHEUMATOID ARTHRITIS
     Dates: start: 20010628, end: 20011010
  2. METHOTREXATE [Concomitant]
  3. PLAQUENIL [Concomitant]
  4. PREDNISONE [Concomitant]
  5. MIACALCIN [Concomitant]
  6. SEVERENT (SALMETEROL XINAFOATE) [Concomitant]
  7. MAXAIR [Concomitant]
  8. FOLIC ACID [Concomitant]
  9. ASPIRIN [Concomitant]
  10. TAMOXIFEN CITRATE [Concomitant]
  11. CALCIUM (CALCIUM) [Concomitant]
  12. PREVACID [Concomitant]
  13. ULTRAM [Concomitant]
  14. DARVOCET (PROPACET) [Concomitant]

REACTIONS (3)
  - DYSPNOEA [None]
  - MYCOBACTERIAL INFECTION [None]
  - OSTEONECROSIS [None]
